FAERS Safety Report 20212350 (Version 2)
Quarter: 2021Q4

REPORT INFORMATION
  Report Type: Spontaneous
  Country: US (occurrence: US)
  Receive Date: 20211221
  Receipt Date: 20211227
  Transmission Date: 20220303
  Serious: Yes (Other)
  Sender: FDA-Public Use
  Company Number: US-CELGENE-USA-20211205528

PATIENT
  Sex: Female

DRUGS (1)
  1. REVLIMID [Suspect]
     Active Substance: LENALIDOMIDE
     Indication: Plasma cell myeloma
     Dosage: 10 MILLIGRAM
     Route: 048
     Dates: start: 202112

REACTIONS (8)
  - Diverticulitis [Unknown]
  - Cardiac disorder [Unknown]
  - Lethargy [Unknown]
  - Asthenia [Unknown]
  - Anaemia [Unknown]
  - Abdominal pain lower [Unknown]
  - Constipation [Unknown]
  - Diarrhoea [Unknown]
